FAERS Safety Report 14536144 (Version 1)
Quarter: 2018Q1

REPORT INFORMATION
  Report Type: Report from Study
  Country: ES (occurrence: ES)
  Receive Date: 20180215
  Receipt Date: 20180215
  Transmission Date: 20180509
  Serious: Yes (Hospitalization)
  Sender: FDA-Public Use
  Company Number: ES-PFIZER INC-2018064094

PATIENT
  Age: 3 Year
  Sex: Female

DRUGS (4)
  1. METAMIZOL /06276702/ [Suspect]
     Active Substance: METAMIZOLE
     Indication: PYREXIA
     Dosage: 130 MG, 3X/DAY (EVERY 8 HOURS)
     Route: 042
     Dates: start: 20170220
  2. ACETAZOLAMIDE. [Suspect]
     Active Substance: ACETAZOLAMIDE
     Indication: HYDROCEPHALUS
     Dosage: 250 MG, 3X/DAY (EVERY 8 HOURS)
     Route: 048
     Dates: start: 20170203, end: 20170225
  3. MEROPENEM. [Suspect]
     Active Substance: MEROPENEM
     Indication: SPINAL CORD INFECTION
     Dosage: 490 MG, 3X/DAY (EVERY 8 HOURS)
     Route: 042
     Dates: start: 20170202, end: 20170226
  4. VANCOMYCIN HCL [Suspect]
     Active Substance: VANCOMYCIN HYDROCHLORIDE
     Indication: SPINAL CORD INFECTION
     Dosage: 270 MG, 3X/DAY (EVERY 8 HOURS)
     Route: 042
     Dates: start: 20170201, end: 20170226

REACTIONS (1)
  - Drug reaction with eosinophilia and systemic symptoms [Recovered/Resolved]

NARRATIVE: CASE EVENT DATE: 20170225
